FAERS Safety Report 8954472 (Version 1)
Quarter: 2012Q4

REPORT INFORMATION
  Report Type: 
  Country: DK (occurrence: DK)
  Receive Date: 20121207
  Receipt Date: 20121207
  Transmission Date: 20130627
  Serious: Yes (Life-Threatening, Hospitalization)
  Sender: FDA-Public Use
  Company Number: DK-B.I. PHARMACEUTICALS,INC./RIDGEFIELD-2012-SW-00261DB

PATIENT
  Age: 73 Year
  Sex: Female
  Weight: 126 kg

DRUGS (3)
  1. PRADAXA [Suspect]
     Indication: CEREBRAL INFARCTION
     Dosage: 300 mg
     Route: 048
     Dates: start: 20110805, end: 20120307
  2. ACETYLSALICYLIC ACID [Suspect]
     Indication: CEREBRAL INFARCTION
     Dosage: 75 mg
     Route: 048
     Dates: start: 20100208, end: 20120307
  3. INSULATARD FLEXPEN [Concomitant]
     Indication: DIABETES MELLITUS
     Route: 058
     Dates: start: 20100317

REACTIONS (4)
  - Anaemia [Recovered/Resolved]
  - Gastritis haemorrhagic [Recovered/Resolved]
  - Iron deficiency anaemia [Recovered/Resolved]
  - Helicobacter gastritis [Recovered/Resolved]
